FAERS Safety Report 6803661-2 (Version None)
Quarter: 2010Q2

REPORT INFORMATION
  Report Type: 
  Country: None (occurrence: None)
  Receive Date: 20100628
  Receipt Date: 20100615
  Transmission Date: 20101027
  Serious: Yes (Death, Life-Threatening, Hospitalization, Other)
  Sender: FDA-Public Use
  Company Number: FR-ELI_LILLY_AND_COMPANY-FR201006004581

PATIENT
  Sex: Male

DRUGS (5)
  1. PROZAC [Suspect]
     Route: 048
  2. PROFENID [Concomitant]
  3. HYDREA [Concomitant]
     Route: 048
  4. HYDREA [Concomitant]
     Dosage: 2 D/F, WEEKLY (1/W)
  5. ZANIDIP [Concomitant]
     Route: 048

REACTIONS (8)
  - ANAEMIA [None]
  - DEATH [None]
  - DUODENITIS [None]
  - GASTRITIS EROSIVE [None]
  - MELAENA [None]
  - RECTAL HAEMORRHAGE [None]
  - SYNCOPE [None]
  - THROMBOCYTOPENIA [None]
